FAERS Safety Report 12597509 (Version 3)
Quarter: 2016Q4

REPORT INFORMATION
  Report Type: Report from Study
  Country: DE (occurrence: DE)
  Receive Date: 20160726
  Receipt Date: 20161019
  Transmission Date: 20170207
  Serious: Yes (Other)
  Sender: FDA-Public Use
  Company Number: PHHY2016DE098337

PATIENT
  Sex: Male
  Weight: 92 kg

DRUGS (9)
  1. COSENTYX [Suspect]
     Active Substance: SECUKINUMAB
     Dosage: 300 MG, PER ADMINISTRATION
     Route: 065
     Dates: end: 20160418
  2. PANTOZOL [Concomitant]
     Active Substance: PANTOPRAZOLE SODIUM
     Indication: GASTRITIS
     Dosage: 1 DF, BID
     Route: 048
     Dates: start: 20160524, end: 20160601
  3. COSENTYX [Suspect]
     Active Substance: SECUKINUMAB
     Indication: PSORIASIS
     Dosage: 300 MG, PER ADMINISTRATION
     Route: 065
     Dates: start: 20160222
  4. COSENTYX [Suspect]
     Active Substance: SECUKINUMAB
     Dosage: 300 MG, PER ADMINISTRATION
     Route: 065
     Dates: start: 20160321
  5. BATRAFEN [Concomitant]
     Indication: TINEA PEDIS
     Dosage: 1 DF, BID
     Route: 061
     Dates: start: 20150907, end: 20150929
  6. PANTOZOL [Concomitant]
     Active Substance: PANTOPRAZOLE SODIUM
     Indication: ABDOMINAL PAIN UPPER
  7. PANTOZOL [Concomitant]
     Active Substance: PANTOPRAZOLE SODIUM
     Indication: DIARRHOEA
  8. XYLONEST [Concomitant]
     Active Substance: PRILOCAINE HYDROCHLORIDE
     Indication: CARPAL TUNNEL SYNDROME
     Dosage: 1 DF, QD
     Route: 058
     Dates: start: 20151101, end: 20151110
  9. IBUPROFEN. [Concomitant]
     Active Substance: IBUPROFEN
     Indication: PAIN IN EXTREMITY
     Dosage: 1 DF, QD
     Route: 048
     Dates: start: 20151110, end: 20151114

REACTIONS (7)
  - Diverticulum intestinal [Not Recovered/Not Resolved]
  - Abdominal pain [Unknown]
  - Diarrhoea [Recovering/Resolving]
  - Abdominal pain upper [Recovering/Resolving]
  - Hepatic enzyme increased [Recovering/Resolving]
  - Crohn^s disease [Unknown]
  - Hepatic steatosis [Not Recovered/Not Resolved]

NARRATIVE: CASE EVENT DATE: 20160518
